FAERS Safety Report 21234542 (Version 5)
Quarter: 2022Q4

REPORT INFORMATION
  Report Type: Report from Study
  Country: CA (occurrence: CA)
  Receive Date: 20220820
  Receipt Date: 20221012
  Transmission Date: 20230113
  Serious: Yes (Other)
  Sender: FDA-Public Use
  Company Number: CA-BRISTOL-MYERS SQUIBB COMPANY-2022-020020

PATIENT
  Age: 57 Year
  Sex: Male
  Weight: 70 kg

DRUGS (3)
  1. OPDIVO [Suspect]
     Active Substance: NIVOLUMAB
     Indication: Gastrooesophageal cancer
     Route: 042
     Dates: start: 20220310
  2. OPDIVO [Suspect]
     Active Substance: NIVOLUMAB
     Dosage: ACD3197/1913768; 30-NOV-2023
     Route: 042
     Dates: start: 20220310
  3. PROSTATE PRO [Concomitant]
     Indication: Product used for unknown indication
     Route: 065

REACTIONS (23)
  - Haemorrhage [Unknown]
  - Hypothyroidism [Unknown]
  - Nausea [Recovered/Resolved]
  - Sneezing [Recovered/Resolved]
  - Rhinorrhoea [Recovered/Resolved]
  - Periarthritis [Recovering/Resolving]
  - Asthenia [Unknown]
  - Contusion [Unknown]
  - Cough [Recovering/Resolving]
  - Dizziness postural [Recovering/Resolving]
  - Arthralgia [Recovering/Resolving]
  - Amnesia [Unknown]
  - Gastrooesophageal reflux disease [Unknown]
  - Diarrhoea [Unknown]
  - Fatigue [Not Recovered/Not Resolved]
  - Blood thyroid stimulating hormone increased [Not Recovered/Not Resolved]
  - Visual impairment [Unknown]
  - Impaired healing [Unknown]
  - Alopecia [Unknown]
  - Anger [Unknown]
  - Condition aggravated [Unknown]
  - Acne [Recovering/Resolving]
  - Post procedural hypotension [Recovering/Resolving]

NARRATIVE: CASE EVENT DATE: 20220806
